FAERS Safety Report 7996810-4 (Version None)
Quarter: 2011Q4

REPORT INFORMATION
  Report Type: 
  Country: None (occurrence: None)
  Receive Date: 20111221
  Receipt Date: 20111213
  Transmission Date: 20120403
  Serious: Yes (Life-Threatening, Hospitalization)
  Sender: FDA-Public Use
  Company Number: FR-JNJFOC-20111011149

PATIENT
  Sex: Male
  Weight: 90 kg

DRUGS (8)
  1. DURAGESIC-100 [Suspect]
     Route: 062
  2. CORDARONE [Concomitant]
     Route: 065
     Dates: start: 20111018
  3. NEURONTIN [Suspect]
     Indication: NEURALGIA
     Route: 048
     Dates: start: 20111018, end: 20111019
  4. NEURONTIN [Suspect]
     Route: 048
     Dates: start: 20111020, end: 20111021
  5. MORPHINE SULFATE [Suspect]
     Indication: PAIN
     Route: 048
     Dates: start: 20111019, end: 20111021
  6. TRAMADOL HCL [Suspect]
     Indication: PAIN
     Route: 048
     Dates: end: 20111019
  7. BISOPROLOL FUMARATE [Concomitant]
     Route: 048
     Dates: start: 20111018
  8. DURAGESIC-100 [Suspect]
     Indication: PAIN
     Route: 062
     Dates: start: 20111021, end: 20111021

REACTIONS (4)
  - COMA [None]
  - MALAISE [None]
  - RESPIRATORY DEPRESSION [None]
  - MIOSIS [None]
